FAERS Safety Report 7292893-8 (Version None)
Quarter: 2011Q1

REPORT INFORMATION
  Report Type: 
  Country: None (occurrence: None)
  Receive Date: 20110215
  Receipt Date: 20110208
  Transmission Date: 20110831
  Serious: Yes (Hospitalization)
  Sender: FDA-Public Use
  Company Number: PHHO2011DE02615

PATIENT
  Sex: Female
  Weight: 66 kg

DRUGS (2)
  1. RAMIPRIL [Concomitant]
  2. AMN107 [Suspect]
     Indication: GASTROINTESTINAL STROMAL TUMOUR
     Dosage: 400 MG, BID
     Route: 048
     Dates: start: 20101224, end: 20100208

REACTIONS (3)
  - ACUTE MYOCARDIAL INFARCTION [None]
  - TROPONIN I INCREASED [None]
  - CHEST PAIN [None]
